FAERS Safety Report 5581083-2 (Version None)
Quarter: 2007Q4

REPORT INFORMATION
  Report Type: 
  Country: None (occurrence: None)
  Receive Date: 20071130
  Receipt Date: 20070715
  Transmission Date: 20080405
  Serious: No
  Sender: FDA-Public Use
  Company Number: US200707003808

PATIENT
  Sex: Male

DRUGS (3)
  1. BYETTA [Suspect]
     Indication: WEIGHT DECREASED
     Dosage: 5; 10 UG, 2/D, SUBCUTANEOUS
     Route: 058
     Dates: start: 20060101, end: 20060101
  2. METFORMIN HCL [Concomitant]
  3. AMARYL [Concomitant]

REACTIONS (4)
  - BLOOD GLUCOSE DECREASED [None]
  - DIZZINESS [None]
  - FATIGUE [None]
  - NAUSEA [None]
